FAERS Safety Report 8578852-3 (Version None)
Quarter: 2012Q3

REPORT INFORMATION
  Report Type: 
  Country: None (occurrence: None)
  Receive Date: 20120808
  Receipt Date: 20120806
  Transmission Date: 20120928
  Serious: Yes (Death)
  Sender: FDA-Public Use
  Company Number: PHHY2012MX068152

PATIENT
  Age: 66 Year
  Sex: Male

DRUGS (2)
  1. DIOVAN HCT [Suspect]
     Indication: HYPERTENSION
     Dosage: 2  TABLETS (160/12.5 MG) DAILY
     Route: 048
     Dates: start: 20100101
  2. METFORMIN HCL [Concomitant]
     Dosage: 1 DAILY

REACTIONS (1)
  - MYOCARDIAL INFARCTION [None]
